FAERS Safety Report 8116510-X (Version None)
Quarter: 2012Q1

REPORT INFORMATION
  Report Type: 
  Country: None (occurrence: None)
  Receive Date: 20120206
  Receipt Date: 20120127
  Transmission Date: 20120608
  Serious: Yes (Hospitalization)
  Sender: FDA-Public Use
  Company Number: US-BAYER-2011-113874

PATIENT
  Age: 34 Year
  Sex: Female
  Weight: 90 kg

DRUGS (7)
  1. YAZ [Suspect]
     Indication: PREMENSTRUAL SYNDROME
  2. CALCIUM CARBONATE [Concomitant]
     Indication: DYSPEPSIA
  3. GES-Y-EZ [Concomitant]
  4. YAZ [Suspect]
     Indication: CONTRACEPTION
     Dosage: UNK
     Dates: start: 20090301, end: 20090901
  5. IBUPROFEN (ADVIL) [Concomitant]
     Indication: PAIN
  6. PREDNISONE [Concomitant]
  7. GAS-X [Concomitant]
     Indication: FLATULENCE

REACTIONS (2)
  - PULMONARY EMBOLISM [None]
  - PAIN [None]
